FAERS Safety Report 19328432 (Version 1)
Quarter: 2021Q2

REPORT INFORMATION
  Report Type: Spontaneous
  Country: CN (occurrence: CN)
  Receive Date: 20210528
  Receipt Date: 20210528
  Transmission Date: 20210717
  Serious: Yes (Hospitalization, Other)
  Sender: FDA-Public Use
  Company Number: CN-009507513-2105CHN005163

PATIENT
  Age: 66 Year
  Sex: Male

DRUGS (2)
  1. TEMOZOLOMIDE. [Suspect]
     Active Substance: TEMOZOLOMIDE
     Indication: CHEMOTHERAPY
     Dosage: 75 MILLIGRAM/SQ. METER, DAILY FOR 42 DAYS WITH REST FOR 4 WEEKS
     Dates: start: 2019
  2. TEMOZOLOMIDE. [Suspect]
     Active Substance: TEMOZOLOMIDE
     Dosage: UNK UNK, CYCLICAL
     Dates: start: 2019

REACTIONS (1)
  - Tumour pseudoprogression [Recovering/Resolving]
